FAERS Safety Report 6349493-3 (Version None)
Quarter: 2009Q3

REPORT INFORMATION
  Report Type: 
  Country: None (occurrence: None)
  Receive Date: 20090911
  Receipt Date: 20090901
  Transmission Date: 20100115
  Serious: Yes (Other)
  Sender: FDA-Public Use
  Company Number: US-GENENTECH-287580

PATIENT
  Sex: Female
  Weight: 72.562 kg

DRUGS (4)
  1. AVASTIN [Suspect]
     Indication: NON-SMALL CELL LUNG CANCER
     Dosage: 795 MG, Q14D
     Route: 042
     Dates: start: 20090303, end: 20090714
  2. ZOMETA [Concomitant]
     Indication: DRUG USE FOR UNKNOWN INDICATION
     Dosage: 4 MG, 1/MONTH
     Dates: start: 20071120
  3. TAXOTERE [Concomitant]
     Indication: DRUG USE FOR UNKNOWN INDICATION
     Dosage: 68 MG, 1/WEEK
     Dates: start: 20090303, end: 20090714
  4. ANTI HYPERTENSIVE MEDS [Concomitant]
     Indication: BLOOD PRESSURE
     Dosage: UNK

REACTIONS (3)
  - FATIGUE [None]
  - NAIL TOXICITY [None]
  - SKIN EXFOLIATION [None]
